FAERS Safety Report 16493001 (Version 13)
Quarter: 2020Q2

REPORT INFORMATION
  Report Type: Report from Study
  Country: None (occurrence: BE)
  Receive Date: 20190628
  Receipt Date: 20200621
  Transmission Date: 20200713
  Serious: Yes (Hospitalization, Other)
  Sender: FDA-Public Use
  Company Number: BE-ABBVIE-19K-013-2834112-00

PATIENT
  Age: 78 Year
  Sex: Male

DRUGS (17)
  1. DUODOPA [Suspect]
     Active Substance: CARBIDOPA\LEVODOPA
     Dosage: MD= 4.1ML, CD= 4ML/HR DURING 16HRS, ED= 4ML
     Route: 050
     Dates: start: 20190711, end: 20190716
  2. DUODOPA [Suspect]
     Active Substance: CARBIDOPA\LEVODOPA
     Dosage: MD= 4.1ML, CD= 3.8ML/HR DURING 16HRS, ED= 4ML
     Route: 050
     Dates: start: 20190716, end: 20200207
  3. DUODOPA [Suspect]
     Active Substance: CARBIDOPA\LEVODOPA
     Dosage: MD=2ML, CD=4ML/HR DURING 16HRS, ED=3ML
     Route: 050
     Dates: start: 20200511, end: 20200513
  4. DUODOPA [Suspect]
     Active Substance: CARBIDOPA\LEVODOPA
     Dosage: DOSES CONTINUOUSLY MONITORED AND ADAPTED
     Route: 050
     Dates: start: 20130712, end: 20180806
  5. STALEVO  100 [Concomitant]
     Dosage: FORM STRENGTH: 100MG/25MG/200MG; UNIT DOSE: 1 UNIT
     Route: 048
  6. PROLOPA HBS 125 [Concomitant]
     Indication: PARKINSON^S DISEASE
     Dosage: FORM STRENGTH: 100MG/25MG; UNIT DOSE: 2 CAPSULES
     Route: 048
  7. DUODOPA [Suspect]
     Active Substance: CARBIDOPA\LEVODOPA
     Indication: PARKINSON^S DISEASE
     Dosage: MD=10ML, CD=4.1ML/HR DURING 16HRS, ED= 4ML
     Route: 050
     Dates: start: 20130527, end: 20130712
  8. STALEVO  100 [Concomitant]
     Indication: PARKINSON^S DISEASE
     Dosage: FORM STRENGTH: 100MG/25MG/200MG; UNIT DOSE: 1 UNIT
     Route: 048
  9. STALEVO  100 [Concomitant]
     Dosage: FORM STRENGTH: 100MG/25MG/200MG; RESCUE MEDICATION
  10. DUODOPA [Suspect]
     Active Substance: CARBIDOPA\LEVODOPA
     Dosage: MD= 4.1ML, CD= 4.5ML/HR DURING 16HRS, ED= 4ML
     Route: 050
     Dates: start: 20180806, end: 20190711
  11. DUODOPA [Suspect]
     Active Substance: CARBIDOPA\LEVODOPA
     Dosage: MD=1.5ML, CD=3.1ML/HR DURING 16HRS, ED=3ML
     Route: 050
     Dates: start: 20200617
  12. REQUIP [Concomitant]
     Active Substance: ROPINIROLE HYDROCHLORIDE
     Indication: PRODUCT USED FOR UNKNOWN INDICATION
  13. ASPIRIN. [Concomitant]
     Active Substance: ASPIRIN
     Indication: PRODUCT USED FOR UNKNOWN INDICATION
  14. ASPIRIN. [Concomitant]
     Active Substance: ASPIRIN
  15. DUODOPA [Suspect]
     Active Substance: CARBIDOPA\LEVODOPA
     Dosage: MD=1.5ML, CD=2.8ML/HR DURING 16HRS, ED=3ML?DOSE DECREASED.
     Route: 050
     Dates: start: 20200520, end: 20200617
  16. DUODOPA [Suspect]
     Active Substance: CARBIDOPA\LEVODOPA
     Dosage: MD= 3.1ML, CD= 3.6ML/HOUR DURING 16HRS, ED= 4ML
     Route: 050
     Dates: start: 20200207, end: 20200511
  17. DUODOPA [Suspect]
     Active Substance: CARBIDOPA\LEVODOPA
     Dosage: MD=2ML, CD=3ML/HR DURING 16HRS, ED=2.5ML
     Route: 050
     Dates: start: 20200513, end: 20200520

REACTIONS (12)
  - Weight increased [Unknown]
  - Stoma site discharge [Unknown]
  - Dyskinesia [Recovered/Resolved]
  - Cystitis [Unknown]
  - Stoma site hypergranulation [Not Recovered/Not Resolved]
  - Nephrolithiasis [Unknown]
  - Gait disturbance [Recovering/Resolving]
  - Pneumonia [Recovered/Resolved]
  - Cholelithiasis [Unknown]
  - Pneumonia [Unknown]
  - Mini mental status examination abnormal [Unknown]
  - Muscle spasms [Unknown]

NARRATIVE: CASE EVENT DATE: 202002
